FAERS Safety Report 8866529 (Version 1)
Quarter: 2012Q4

REPORT INFORMATION
  Report Type: Report from Study
  Country: US (occurrence: US)
  Receive Date: 20121025
  Receipt Date: 20121025
  Transmission Date: 20130627
  Serious: No
  Sender: FDA-Public Use
  Company Number: US-ABBOTT-11P-163-0876198-00

PATIENT
  Age: 45 None
  Sex: Female
  Weight: 86.26 kg

DRUGS (12)
  1. LUPRON DEPOT 3.75 MG [Suspect]
     Indication: UTERINE LEIOMYOMA
     Dates: start: 201011
  2. LUPRON DEPOT 3.75 MG [Suspect]
     Dates: start: 201110
  3. OXYGEN [Concomitant]
     Indication: FATIGUE
     Dosage: Half a tank per day as needed
     Dates: start: 2008
  4. EFFEXOR [Concomitant]
     Indication: ANXIETY
  5. LASIX [Concomitant]
     Indication: PRODUCT USED FOR UNKNOWN INDICATION
  6. NORVASC [Concomitant]
     Indication: PRODUCT USED FOR UNKNOWN INDICATION
  7. ASPIRIN [Concomitant]
     Indication: PRODUCT USED FOR UNKNOWN INDICATION
  8. POTASSIUM [Concomitant]
     Indication: PRODUCT USED FOR UNKNOWN INDICATION
  9. ADVAIR [Concomitant]
     Indication: PRODUCT USED FOR UNKNOWN INDICATION
  10. SPIRIVA [Concomitant]
     Indication: PRODUCT USED FOR UNKNOWN INDICATION
  11. ALBUTEROL [Concomitant]
     Indication: PRODUCT USED FOR UNKNOWN INDICATION
  12. KLONOPIN [Concomitant]
     Indication: PRODUCT USED FOR UNKNOWN INDICATION

REACTIONS (4)
  - Sleep apnoea syndrome [Unknown]
  - Heart rate decreased [Unknown]
  - Fatigue [Unknown]
  - Uterine leiomyoma [Unknown]
